FAERS Safety Report 24869409 (Version 1)
Quarter: 2025Q1

REPORT INFORMATION
  Report Type: Report from Study
  Country: US (occurrence: US)
  Receive Date: 20250121
  Receipt Date: 20250121
  Transmission Date: 20250409
  Serious: Yes (Other)
  Sender: ALEXION PHARMACEUTICALS
  Company Number: US-AstraZeneca-CH-00785259A

PATIENT

DRUGS (1)
  1. EXENATIDE [Suspect]
     Active Substance: EXENATIDE
     Dosage: 2 MILLIGRAM, QW

REACTIONS (3)
  - Shock [Unknown]
  - Blood glucose abnormal [Unknown]
  - Inability to afford medication [Unknown]
